FAERS Safety Report 24621437 (Version 2)
Quarter: 2024Q4

REPORT INFORMATION
  Report Type: Spontaneous
  Country: JP (occurrence: JP)
  Receive Date: 20241114
  Receipt Date: 20241118
  Transmission Date: 20250115
  Serious: Yes (Death, Hospitalization, Disabling)
  Sender: DAIICHI
  Company Number: JP-DSJP-DS-2024-105393-JP

PATIENT
  Age: 73 Year
  Sex: Female
  Weight: 60 kg

DRUGS (6)
  1. ENHERTU [Suspect]
     Active Substance: FAM-TRASTUZUMAB DERUXTECAN-NXKI
     Indication: HER2 positive breast cancer
     Dosage: 3.3 MG/KG, SINGLE
     Route: 041
     Dates: start: 20241001, end: 20241001
  2. PALONOSETRON HYDROCHLORIDE [Concomitant]
     Active Substance: PALONOSETRON HYDROCHLORIDE
     Indication: Prophylaxis of nausea and vomiting
     Dosage: 0.75 MG, QD
     Route: 042
     Dates: start: 20241001
  3. DECADRON (DEXAMETHASONE SODIUM PHOSPHATE) [Concomitant]
     Active Substance: DEXAMETHASONE SODIUM PHOSPHATE
     Indication: Prophylaxis of nausea and vomiting
     Dosage: 6.6 MG, QD
     Route: 042
     Dates: start: 20241001
  4. FOSNETUPITANT CHLORIDE HYDROCHLORIDE [Concomitant]
     Active Substance: FOSNETUPITANT CHLORIDE HYDROCHLORIDE
     Indication: Prophylaxis of nausea and vomiting
     Dosage: 235 MG, QD
     Route: 042
     Dates: start: 20241001
  5. ELNEOPA NF NO.1 [Concomitant]
     Indication: Decreased appetite
     Dosage: 1500 ML, QD
     Route: 042
     Dates: start: 20241001, end: 20241007
  6. PN-TWIN NO. 2 [Concomitant]
     Indication: Decreased appetite
     Dosage: 1100 ML, QD
     Route: 042
     Dates: start: 20241008, end: 20241102

REACTIONS (2)
  - Interstitial lung disease [Fatal]
  - Underdose [Unknown]

NARRATIVE: CASE EVENT DATE: 20241001
